FAERS Safety Report 16679637 (Version 1)
Quarter: 2019Q3

REPORT INFORMATION
  Report Type: Spontaneous
  Country: US (occurrence: US)
  Receive Date: 20190807
  Receipt Date: 20190807
  Transmission Date: 20191004
  Serious: Yes (Other)
  Sender: FDA-Public Use
  Company Number: US-ALCON LABORATORIES-PHHY2019US105797

PATIENT

DRUGS (1)
  1. ICAPS [Suspect]
     Active Substance: MINERALS\VITAMINS
     Indication: PRODUCT USED FOR UNKNOWN INDICATION
     Route: 065

REACTIONS (4)
  - Product size issue [Unknown]
  - Foreign body in respiratory tract [Unknown]
  - Product odour abnormal [Unknown]
  - Product use complaint [Unknown]
